FAERS Safety Report 17375075 (Version 2)
Quarter: 2020Q1

REPORT INFORMATION
  Report Type: Spontaneous
  Country: DE (occurrence: DE)
  Receive Date: 20200205
  Receipt Date: 20200304
  Transmission Date: 20200409
  Serious: Yes (Other)
  Sender: FDA-Public Use
  Company Number: DE-MYLANLABS-2020M1012708

PATIENT
  Sex: Female

DRUGS (2)
  1. PREGABALIN. [Suspect]
     Active Substance: PREGABALIN
     Indication: NEURALGIA
     Dosage: 4 DOSAGE FORM, QD (2 DF, BID (25 MG, 2-0-2)
     Route: 065
  2. PREGABALIN. [Suspect]
     Active Substance: PREGABALIN
     Dosage: 50 MILLIGRAM, QD (25 MG, BID (1-0-1, FOR SEVEN DAYS)
     Route: 065

REACTIONS (4)
  - Gastric dilatation [Unknown]
  - Pain [Unknown]
  - Constipation [Unknown]
  - Hallucination [Unknown]
